FAERS Safety Report 7949928-6 (Version None)
Quarter: 2011Q4

REPORT INFORMATION
  Report Type: 
  Country: None (occurrence: None)
  Receive Date: 20111130
  Receipt Date: 20111123
  Transmission Date: 20120403
  Serious: Yes (Hospitalization, Other)
  Sender: FDA-Public Use
  Company Number: FR-BRISTOL-MYERS SQUIBB COMPANY-16248841

PATIENT
  Age: 54 Year
  Sex: Female

DRUGS (6)
  1. KETOPROFEN [Suspect]
     Dosage: POWDER FOR INF IN A BOTTLE ONE SINGLE INTRAVENOUS ADMINISTRATION
     Route: 042
     Dates: start: 20111013
  2. ERBITUX [Suspect]
     Dosage: SINGLE IV ADMS,HS I.E 88ML,COMBD PREMEDI'N WITH DEXAMETHASONE,POLARAMINE,VIA IMPLANTABLE INJ
     Route: 042
     Dates: start: 20111013
  3. DEXAMETHASONE [Suspect]
     Dosage: SINGLE INTRAVENOUS ADMINISTRATION
     Route: 042
     Dates: start: 20111013
  4. VISIPAQUE [Suspect]
     Dosage: ONE SINGLE INTRAVENOUS ADMINISTRATION
     Route: 042
     Dates: start: 20111014
  5. ACETAMINOPHEN [Suspect]
     Dosage: PERFALGAN 10 MG/ML SOLN FOR INF(PARACETAMOL) 1G IN A SINGLE INTRAVENOUS ADMINISTRATION
     Route: 042
     Dates: start: 20111013
  6. POLARAMINE [Suspect]
     Dosage: 1 DF : 5MG/ML ONE SINGLE INTRAVENOUS ADMINISTRATION
     Route: 042
     Dates: start: 20111013

REACTIONS (2)
  - PAIN [None]
  - INFUSION SITE EXTRAVASATION [None]
